FAERS Safety Report 9283146 (Version 1)
Quarter: 2013Q2

REPORT INFORMATION
  Report Type: Spontaneous
  Country: US (occurrence: US)
  Receive Date: 20130510
  Receipt Date: 20130510
  Transmission Date: 20140414
  Serious: Yes (Other)
  Sender: FDA-Public Use
  Company Number: US-ASTRAZENECA-2013SE31196

PATIENT
  Age: 59 Year
  Sex: Female
  Weight: 74.8 kg

DRUGS (6)
  1. ANASTROZOLE [Suspect]
     Indication: BREAST CANCER FEMALE
     Route: 048
     Dates: start: 201301, end: 201304
  2. OTHER PRODUCT [Suspect]
     Route: 065
  3. LEVOXYL [Concomitant]
  4. LIPITOR [Concomitant]
  5. LEXAPRO [Concomitant]
  6. PROTON RADIATION THERAPY [Concomitant]

REACTIONS (1)
  - Alopecia [Unknown]
